FAERS Safety Report 18889135 (Version 1)
Quarter: 2021Q1

REPORT INFORMATION
  Report Type: Report from Study
  Country: IN (occurrence: IN)
  Receive Date: 20210212
  Receipt Date: 20210212
  Transmission Date: 20210420
  Serious: Yes (Other)
  Sender: FDA-Public Use
  Company Number: IN-ASTRAZENECA-2021A035773

PATIENT
  Age: 22582 Day
  Sex: Female

DRUGS (1)
  1. TAGRISSO [Suspect]
     Active Substance: OSIMERTINIB
     Indication: LUNG NEOPLASM MALIGNANT
     Route: 048

REACTIONS (5)
  - Lip pain [Unknown]
  - Rash [Unknown]
  - Dry skin [Unknown]
  - Muscle twitching [Unknown]
  - Pruritus [Unknown]

NARRATIVE: CASE EVENT DATE: 20210205
